FAERS Safety Report 13971001 (Version 1)
Quarter: 2017Q3

REPORT INFORMATION
  Report Type: Spontaneous
  Country: US (occurrence: US)
  Receive Date: 20170914
  Receipt Date: 20170914
  Transmission Date: 20171128
  Serious: No
  Sender: FDA-Public Use
  Company Number: US-ASTELLAS-2017US001265

PATIENT
  Sex: Male

DRUGS (1)
  1. XTANDI [Suspect]
     Active Substance: ENZALUTAMIDE
     Indication: PROSTATE CANCER
     Route: 048

REACTIONS (14)
  - Nasopharyngitis [Unknown]
  - Dyspnoea [Not Recovered/Not Resolved]
  - Arthralgia [Unknown]
  - Pain in jaw [Unknown]
  - Pain in extremity [Not Recovered/Not Resolved]
  - Renal impairment [Unknown]
  - Sinus congestion [Unknown]
  - Musculoskeletal pain [Not Recovered/Not Resolved]
  - Back pain [Not Recovered/Not Resolved]
  - Prostatic specific antigen increased [Unknown]
  - Cough [Unknown]
  - Wheezing [Not Recovered/Not Resolved]
  - Blood urea increased [Unknown]
  - Bone pain [Unknown]
